FAERS Safety Report 17870162 (Version 1)
Quarter: 2020Q2

REPORT INFORMATION
  Report Type: Spontaneous
  Country: US (occurrence: US)
  Receive Date: 20200608
  Receipt Date: 20200608
  Transmission Date: 20200714
  Serious: No
  Sender: FDA-Public Use
  Company Number: US-SA-2020SA144263

PATIENT

DRUGS (2)
  1. LEMTRADA [Suspect]
     Active Substance: ALEMTUZUMAB
     Dosage: UNK UNK UNK
     Route: 065
     Dates: start: 201903, end: 201903
  2. LEMTRADA [Suspect]
     Active Substance: ALEMTUZUMAB
     Dosage: UNK UNK UNK
     Route: 065
     Dates: start: 2018, end: 2018

REACTIONS (7)
  - Cognitive disorder [Unknown]
  - CD4 lymphocytes decreased [Unknown]
  - Decreased immune responsiveness [Unknown]
  - Anxiety [Unknown]
  - Pyrexia [Unknown]
  - Fatigue [Unknown]
  - Condition aggravated [Unknown]
